FAERS Safety Report 14280453 (Version 3)
Quarter: 2018Q1

REPORT INFORMATION
  Report Type: Report from Study
  Country: US (occurrence: US)
  Receive Date: 20171212
  Receipt Date: 20180103
  Transmission Date: 20180508
  Serious: Yes (Death, Hospitalization)
  Sender: FDA-Public Use
  Company Number: US-ACTELION-A-US2017-161654

PATIENT
  Age: 66 Year
  Sex: Female
  Weight: 51.7 kg

DRUGS (13)
  1. UPTRAVI [Suspect]
     Active Substance: SELEXIPAG
     Indication: PULMONARY ARTERIAL HYPERTENSION
     Dosage: 1000 MCG, BID
     Route: 048
     Dates: start: 20160212
  2. CHOLECALCIFEROL [Concomitant]
     Active Substance: CHOLECALCIFEROL
     Dosage: 1000 U, QD
     Route: 048
  3. TADALAFIL [Concomitant]
     Active Substance: TADALAFIL
     Dosage: 20 MG, QD
     Route: 048
  4. OPSUMIT [Suspect]
     Active Substance: MACITENTAN
     Indication: PULMONARY ARTERIAL HYPERTENSION
     Dosage: 10 MG, QD
     Route: 048
     Dates: start: 20160111
  5. POTASSIUM CHLORIDE. [Concomitant]
     Active Substance: POTASSIUM CHLORIDE
     Dosage: 10 MEQ, QD
     Route: 048
  6. FUROSEMIDE. [Concomitant]
     Active Substance: FUROSEMIDE
     Dosage: 10 MG, QD
     Route: 048
  7. CHOLESTYRAMINE. [Concomitant]
     Active Substance: CHOLESTYRAMINE
     Dosage: 4 G, PRN
     Route: 048
  8. LEVOTHYROXINE. [Concomitant]
     Active Substance: LEVOTHYROXINE
     Dosage: 75 MCG, UNK
     Route: 048
  9. PANTOPRAZOLE [Concomitant]
     Active Substance: PANTOPRAZOLE
     Dosage: 40 MG, QD
     Route: 048
  10. VITAMIN B COMPLEX [Concomitant]
     Active Substance: CYANOCOBALAMIN\DEXPANTHENOL\NIACINAMIDE\PYRIDOXINE HYDROCHLORIDE\RIBOFLAVIN 5^-PHOSPHATE SODIUM\THIAMINE HYDROCHLORIDE\VITAMIN B COMPLEX
     Dosage: UNK, QD
     Route: 048
  11. ANUSOL NOS [Concomitant]
     Active Substance: BALSAM PERU\BENZYL BENZOATE\BISMUTH HYDROXIDE\BISMUTH SUBGALLATE\HYDROCORTISONE ACETATE\ZINC OXIDE
     Dosage: 25 MG, QID, PRN
  12. MULTIVITAMIN WITH MINERALS [Concomitant]
     Active Substance: MINERALS\VITAMINS
     Dosage: UNK, QD
     Route: 048
  13. MIDODRINE [Concomitant]
     Active Substance: MIDODRINE
     Dosage: 10 MG, TID
     Route: 048

REACTIONS (29)
  - Pleural effusion [Unknown]
  - Diarrhoea haemorrhagic [Recovering/Resolving]
  - Cor pulmonale chronic [Unknown]
  - Pulmonary hypertension [Unknown]
  - Hypoxia [Unknown]
  - Diarrhoea [Unknown]
  - Urine output decreased [Unknown]
  - Confusional state [Unknown]
  - Transfusion [Unknown]
  - Failure to thrive [Unknown]
  - Hernia [Unknown]
  - Right ventricular failure [Unknown]
  - Acute respiratory failure [Unknown]
  - Fluid overload [Unknown]
  - Ascites [Unknown]
  - Dehydration [Unknown]
  - Abdominal pain [Unknown]
  - Atelectasis [Unknown]
  - Death [Fatal]
  - Paracentesis [Unknown]
  - Asthenia [Unknown]
  - Dyspnoea [Recovering/Resolving]
  - Weight decreased [Unknown]
  - Urinary tract infection [Unknown]
  - Fatigue [Unknown]
  - Gastrointestinal haemorrhage [Recovering/Resolving]
  - Troponin increased [Unknown]
  - Abdominal distension [Unknown]
  - Oedema peripheral [Unknown]

NARRATIVE: CASE EVENT DATE: 201707
